FAERS Safety Report 6096580-3 (Version None)
Quarter: 2009Q1

REPORT INFORMATION
  Report Type: 
  Country: None (occurrence: None)
  Receive Date: 20090225
  Receipt Date: 20090225
  Transmission Date: 20090719
  Serious: No
  Sender: FDA-Public Use
  Company Number: None

PATIENT
  Sex: Male
  Weight: 118.3888 kg

DRUGS (1)
  1. CLOZARIL [Suspect]
     Indication: DEPRESSION
     Dosage: 300 MG. ONCE DAILY
     Dates: start: 20081101, end: 20090213

REACTIONS (3)
  - DIZZINESS [None]
  - MUSCLE SPASMS [None]
  - VISION BLURRED [None]
